FAERS Safety Report 9217339 (Version 2)
Quarter: 2013Q2

REPORT INFORMATION
  Report Type: Report from Study
  Country: US (occurrence: US)
  Receive Date: 20130408
  Receipt Date: 20130422
  Transmission Date: 20140414
  Serious: Yes (Life-Threatening, Hospitalization, Other)
  Sender: FDA-Public Use
  Company Number: US-ROCHE-1209584

PATIENT
  Age: 60 Year
  Sex: Female
  Weight: 60.84 kg

DRUGS (3)
  1. KADCYLA [Suspect]
     Indication: BREAST CANCER METASTATIC
     Route: 042
     Dates: start: 20130315, end: 20130315
  2. ALOXI [Concomitant]
     Indication: NAUSEA
     Route: 042
     Dates: start: 20130315, end: 20130315
  3. BENADRYL [Concomitant]
     Indication: ANXIETY
     Route: 042
     Dates: start: 20130315, end: 20130315

REACTIONS (4)
  - Epistaxis [Unknown]
  - Adverse drug reaction [Unknown]
  - Epistaxis [Recovered/Resolved]
  - Thrombocytopenia [Recovered/Resolved]
